FAERS Safety Report 8617130-0 (Version None)
Quarter: 2012Q3

REPORT INFORMATION
  Report Type: 
  Country: None (occurrence: None)
  Receive Date: 20120823
  Receipt Date: 20120820
  Transmission Date: 20120928
  Serious: No
  Sender: FDA-Public Use
  Company Number: US-PFIZER INC-2012204323

PATIENT
  Age: 50 Year
  Sex: Female
  Weight: 48.526 kg

DRUGS (4)
  1. FLUOXETINE [Concomitant]
     Indication: PREMENSTRUAL SYNDROME
     Dosage: 20 MG, 1X/DAY
  2. SYNTHROID [Concomitant]
     Indication: HYPERTHYROIDISM
     Dosage: UNK, DAILY
     Route: 048
  3. KETOPROFEN [Concomitant]
     Indication: PAIN
     Dosage: 75 MG, 1X/DAY
  4. LYRICA [Suspect]
     Indication: NECK PAIN
     Dosage: 50 MG, 3X/DAY
     Route: 048
     Dates: start: 20120810

REACTIONS (1)
  - SOMNAMBULISM [None]
